FAERS Safety Report 17250950 (Version 1)
Quarter: 2020Q1

REPORT INFORMATION
  Report Type: Spontaneous
  Country: JP (occurrence: JP)
  Receive Date: 20200109
  Receipt Date: 20200109
  Transmission Date: 20200409
  Serious: Yes (Other)
  Sender: FDA-Public Use
  Company Number: NVSJ2019JP006588

PATIENT

DRUGS (2)
  1. EVEROLIMUS. [Suspect]
     Active Substance: EVEROLIMUS
     Indication: RHABDOMYOMA
  2. EVEROLIMUS. [Suspect]
     Active Substance: EVEROLIMUS
     Indication: TUBEROUS SCLEROSIS COMPLEX
     Dosage: 0.1 MG
     Route: 065

REACTIONS (3)
  - Electrocardiogram delta waves abnormal [Unknown]
  - Neoplasm progression [Unknown]
  - Tricuspid valve incompetence [Unknown]
